FAERS Safety Report 22330032 (Version 1)
Quarter: 2023Q2

REPORT INFORMATION
  Report Type: Spontaneous
  Country: US (occurrence: None)
  Receive Date: 20230517
  Receipt Date: 20230517
  Transmission Date: 20230722
  Serious: No
  Sender: FDA-Public Use
  Company Number: US-ROCHE-3187851

PATIENT
  Sex: Female

DRUGS (1)
  1. ACTEMRA [Suspect]
     Active Substance: TOCILIZUMAB
     Indication: Rheumatoid arthritis
     Route: 042
     Dates: start: 20220901

REACTIONS (5)
  - Joint swelling [Unknown]
  - Arthralgia [Unknown]
  - Urinary tract infection [Unknown]
  - Sinus disorder [Unknown]
  - Abdominal discomfort [Unknown]
